FAERS Safety Report 8252824-0 (Version None)
Quarter: 2012Q2

REPORT INFORMATION
  Report Type: 
  Country: None (occurrence: None)
  Receive Date: 20120402
  Receipt Date: 20111229
  Transmission Date: 20120825
  Serious: No
  Sender: FDA-Public Use
  Company Number: US-ABBOTT-12P-163-0888452-00

PATIENT
  Age: 72 Year
  Sex: Male
  Weight: 95.34 kg

DRUGS (2)
  1. UNKNOWN MEDICATIONS [Concomitant]
     Indication: DIABETES MELLITUS
  2. ANDROGEL [Suspect]
     Indication: BLOOD TESTOSTERONE DECREASED
     Dosage: 3 PUMPS PER DAY
     Dates: start: 20080101

REACTIONS (1)
  - APPLICATION SITE DRYNESS [None]
